FAERS Safety Report 19144856 (Version 1)
Quarter: 2021Q2

REPORT INFORMATION
  Report Type: Report from Study
  Country: JP (occurrence: JP)
  Receive Date: 20210416
  Receipt Date: 20210416
  Transmission Date: 20210717
  Serious: Yes (Other)
  Sender: FDA-Public Use
  Company Number: JP-CELLTRION INC.-2021JP004912

PATIENT

DRUGS (7)
  1. CT?P13 [Suspect]
     Active Substance: INFLIXIMAB-DYYB
     Dosage: 300 MG (WEIGHT: 60.5 KG)
     Route: 041
     Dates: start: 20190702, end: 20190702
  2. CT?P13 [Suspect]
     Active Substance: INFLIXIMAB-DYYB
     Dosage: 310 MG (WEIGHT: 62.4 KG)
     Route: 041
     Dates: start: 20200107, end: 20200107
  3. CT?P13 [Suspect]
     Active Substance: INFLIXIMAB-DYYB
     Dosage: 305 MG (WEIGHT: 61 KG)
     Route: 041
     Dates: start: 20201226, end: 20201226
  4. CT?P13 [Suspect]
     Active Substance: INFLIXIMAB-DYYB
     Dosage: 315 MG (WEIGHT: 63.2 KG)
     Route: 041
     Dates: start: 20190306, end: 20190306
  5. CT?P13 [Suspect]
     Active Substance: INFLIXIMAB-DYYB
     Dosage: 310 MG (WEIGHT: 62 KG)
     Route: 041
     Dates: start: 20190509, end: 20190509
  6. CT?P13 [Suspect]
     Active Substance: INFLIXIMAB-DYYB
     Indication: CROHN^S DISEASE
     Dosage: 310 MG (WEIGHT: 61.9 KG)
     Route: 041
     Dates: start: 20190109, end: 20190109
  7. AZATHIOPRINE. [Concomitant]
     Active Substance: AZATHIOPRINE
     Dosage: 100 MILLIGRAM/DAY
     Route: 048

REACTIONS (7)
  - Enteritis infectious [Recovered/Resolved]
  - Underdose [Unknown]
  - Subileus [Recovered/Resolved]
  - Overdose [Unknown]
  - Off label use [Unknown]
  - Pyrexia [Recovered/Resolved]
  - Product use issue [Unknown]

NARRATIVE: CASE EVENT DATE: 20190509
